FAERS Safety Report 14709863 (Version 1)
Quarter: 2018Q2

REPORT INFORMATION
  Report Type: Spontaneous
  Country: KR (occurrence: KR)
  Receive Date: 20180403
  Receipt Date: 20180403
  Transmission Date: 20180711
  Serious: Yes (Other)
  Sender: FDA-Public Use
  Company Number: KR-GALDERMA-KR18003651

PATIENT
  Age: 33 Year
  Sex: Female

DRUGS (1)
  1. SOOLANTRA [Suspect]
     Active Substance: IVERMECTIN
     Indication: ROSACEA
     Route: 061
     Dates: start: 20180224, end: 20180228

REACTIONS (4)
  - Application site pain [Recovering/Resolving]
  - Application site pruritus [Recovering/Resolving]
  - Blister [Recovering/Resolving]
  - Pyoderma [Recovering/Resolving]

NARRATIVE: CASE EVENT DATE: 20180225
